FAERS Safety Report 20305735 (Version 3)
Quarter: 2022Q1

REPORT INFORMATION
  Report Type: Report from Study
  Country: CA (occurrence: CA)
  Receive Date: 20220106
  Receipt Date: 20220224
  Transmission Date: 20220423
  Serious: Yes (Other)
  Sender: FDA-Public Use
  Company Number: CA-SA-SAC20210427000776

PATIENT
  Age: 63 Year
  Sex: Female

DRUGS (21)
  1. ALEMTUZUMAB [Suspect]
     Active Substance: ALEMTUZUMAB
     Indication: Relapsing-remitting multiple sclerosis
     Dosage: 12 MG, QD
     Route: 041
     Dates: start: 20190508, end: 20190510
  2. METHYLPREDNISOLONE [Suspect]
     Active Substance: METHYLPREDNISOLONE
     Indication: Premedication
     Dosage: 50 MG,
     Route: 042
     Dates: start: 20190508, end: 20190510
  3. VITAMIN B2 [Concomitant]
     Active Substance: RIBOFLAVIN
  4. BENADRYL [Concomitant]
     Active Substance: DIPHENHYDRAMINE HYDROCHLORIDE
     Indication: Premedication
     Dosage: 50 MG, UNK
     Route: 042
     Dates: start: 20190508, end: 20190510
  5. RANITIDINE [Concomitant]
     Active Substance: RANITIDINE
     Indication: Premedication
     Dosage: 150 MG, BID
     Route: 048
     Dates: start: 20190508, end: 20190510
  6. ACYCLOVIR [Concomitant]
     Active Substance: ACYCLOVIR
     Indication: Premedication
     Dosage: 200 MG, UNK
     Route: 048
     Dates: start: 20190508
  7. SYNTHROID [Concomitant]
     Active Substance: LEVOTHYROXINE SODIUM
     Dosage: UNK UNK, QD
     Route: 048
  8. SYNTHROID [Concomitant]
     Active Substance: LEVOTHYROXINE SODIUM
  9. SYNTHROID [Concomitant]
     Active Substance: LEVOTHYROXINE SODIUM
  10. TYLENOL [Concomitant]
     Active Substance: ACETAMINOPHEN
     Indication: Premedication
     Dosage: 650-975 MG, PRN
     Route: 048
     Dates: start: 20190508
  11. VITAMIN B1 [Concomitant]
     Active Substance: THIAMINE HYDROCHLORIDE
     Dosage: UNK UNK, QD
     Route: 048
  12. VITAMIN B12 [Concomitant]
     Active Substance: CYANOCOBALAMIN
     Dosage: UNK UNK, QD
     Route: 048
  13. VITAMIN D NOS [Concomitant]
     Active Substance: VITAMIN D NOS
     Dosage: UNK UNK, QD
     Route: 048
  14. VITAMIN D NOS [Concomitant]
     Active Substance: VITAMIN D NOS
  15. CETIRIZINE HYDROCHLORIDE [Concomitant]
     Active Substance: CETIRIZINE HYDROCHLORIDE
     Dosage: UNK UNK, PRN
     Route: 048
  16. CETIRIZINE HYDROCHLORIDE [Concomitant]
     Active Substance: CETIRIZINE HYDROCHLORIDE
  17. CETIRIZINE HYDROCHLORIDE [Concomitant]
     Active Substance: CETIRIZINE HYDROCHLORIDE
  18. ADVIL [Concomitant]
     Active Substance: IBUPROFEN
     Indication: Headache
     Dosage: 400 MG, PRN
     Route: 048
     Dates: start: 20190510
  19. ATIVAN [Concomitant]
     Active Substance: LORAZEPAM
     Indication: Sleep disorder
     Dosage: 1 MG, PRN
     Route: 048
     Dates: start: 20190509
  20. GRAVOL [Concomitant]
     Active Substance: DIMENHYDRINATE
     Indication: Nausea
     Dosage: 50 MG, PRN
     Route: 048
     Dates: start: 20190508
  21. TYLENOL [Concomitant]
     Active Substance: ACETAMINOPHEN
     Indication: Premedication
     Dosage: 975 MG, PRN
     Route: 048
     Dates: start: 20190508

REACTIONS (28)
  - Thrombocytopenia [Unknown]
  - Venous injury [Not Recovered/Not Resolved]
  - Monoplegia [Recovered/Resolved]
  - Sensory loss [Recovered/Resolved]
  - Gait disturbance [Recovered/Resolved]
  - Haematoma [Not Recovered/Not Resolved]
  - Crystal urine present [Not Recovered/Not Resolved]
  - Urine analysis abnormal [Not Recovered/Not Resolved]
  - Neutrophil percentage increased [Recovered/Resolved]
  - Eosinophil percentage increased [Recovered/Resolved]
  - Throat tightness [Recovering/Resolving]
  - Depressed mood [Recovering/Resolving]
  - Poor quality sleep [Recovering/Resolving]
  - Lymphocyte count decreased [Not Recovered/Not Resolved]
  - White blood cell count decreased [Not Recovered/Not Resolved]
  - Rash [Recovering/Resolving]
  - Lymphocyte percentage decreased [Not Recovered/Not Resolved]
  - Hypotension [Recovered/Resolved]
  - Fatigue [Recovered/Resolved]
  - Headache [Recovered/Resolved]
  - Nausea [Recovered/Resolved]
  - Pruritus [Recovering/Resolving]
  - Dizziness [Recovering/Resolving]
  - Glomerular filtration rate decreased [Unknown]
  - Poor venous access [Not Recovered/Not Resolved]
  - Diarrhoea [Recovering/Resolving]
  - Platelet count decreased [Recovering/Resolving]
  - Emotional distress [Recovering/Resolving]

NARRATIVE: CASE EVENT DATE: 20190501
